FAERS Safety Report 23140530 (Version 1)
Quarter: 2023Q4

REPORT INFORMATION
  Report Type: Report from Study
  Country: CA (occurrence: CA)
  Receive Date: 20231102
  Receipt Date: 20231102
  Transmission Date: 20240110
  Serious: Yes (Hospitalization)
  Sender: FDA-Public Use
  Company Number: CA-ABBVIE-5478241

PATIENT
  Age: 36 Year
  Sex: Male

DRUGS (10)
  1. RISANKIZUMAB [Suspect]
     Active Substance: RISANKIZUMAB
     Indication: Psoriasis
     Route: 058
     Dates: start: 20221011
  2. NALTREXONE [Concomitant]
     Active Substance: NALTREXONE
     Indication: Alcohol use disorder
     Dates: start: 20220709, end: 20220830
  3. SECUKINUMAB [Concomitant]
     Active Substance: SECUKINUMAB
     Indication: Product used for unknown indication
     Dates: start: 20210302, end: 20221011
  4. REXULTI [Concomitant]
     Active Substance: BREXPIPRAZOLE
     Indication: Depression
     Dates: start: 20221025, end: 202305
  5. BUSPIRONE [Concomitant]
     Active Substance: BUSPIRONE HYDROCHLORIDE
     Indication: Depression
     Dosage: TIME INTERVAL: 0.33333333 DAYS
     Dates: start: 202302, end: 202305
  6. FLUCONAZOLE [Concomitant]
     Active Substance: FLUCONAZOLE
     Indication: Gingivitis
     Dates: start: 20220714, end: 20220728
  7. CITALOPRAM [Concomitant]
     Active Substance: CITALOPRAM HYDROBROMIDE
     Indication: Depression
     Dates: start: 20220622, end: 20221025
  8. GABAPENTIN [Concomitant]
     Active Substance: GABAPENTIN
     Indication: Alcohol use disorder
  9. GABAPENTIN [Concomitant]
     Active Substance: GABAPENTIN
     Indication: Alcohol use disorder
     Dosage: TIME INTERVAL: 0.33333333 DAYS
     Dates: start: 20220709, end: 202208
  10. CLONAZEPAM [Concomitant]
     Active Substance: CLONAZEPAM
     Indication: Depression
     Dosage: AS NEEDED
     Dates: start: 20220922, end: 202302

REACTIONS (1)
  - Suicidal ideation [Recovered/Resolved]

NARRATIVE: CASE EVENT DATE: 20231005
